FAERS Safety Report 7524539-5 (Version None)
Quarter: 2011Q2

REPORT INFORMATION
  Report Type: 
  Country: None (occurrence: None)
  Receive Date: 20110606
  Receipt Date: 20110525
  Transmission Date: 20111010
  Serious: Yes (Hospitalization, Other)
  Sender: FDA-Public Use
  Company Number: US-BAYER-2011-045472

PATIENT
  Sex: Female

DRUGS (1)
  1. MIRENA [Suspect]
     Indication: CONTRACEPTION
     Dosage: 20 MCG/24HR, CONT
     Route: 015
     Dates: start: 20100101

REACTIONS (5)
  - OVARIAN CYST RUPTURED [None]
  - ABDOMINAL PAIN LOWER [None]
  - INTRA-ABDOMINAL HAEMORRHAGE [None]
  - HEADACHE [None]
  - OVARIAN CYST [None]
